FAERS Safety Report 25862925 (Version 1)
Quarter: 2025Q3

REPORT INFORMATION
  Report Type: Spontaneous
  Country: RU (occurrence: RU)
  Receive Date: 20250930
  Receipt Date: 20250930
  Transmission Date: 20251021
  Serious: Yes (Death, Hospitalization)
  Sender: BOEHRINGER INGELHEIM
  Company Number: RU-BoehringerIngelheim-2025-BI-098325

PATIENT
  Age: 65 Year
  Sex: Male

DRUGS (2)
  1. NINTEDANIB [Suspect]
     Active Substance: NINTEDANIB
     Indication: Interstitial lung disease
     Dates: start: 202103, end: 202508
  2. NINTEDANIB [Suspect]
     Active Substance: NINTEDANIB
     Indication: Rheumatoid arthritis

REACTIONS (3)
  - Cardiac arrest [Fatal]
  - Interstitial lung disease [Fatal]
  - Pneumonia [Fatal]

NARRATIVE: CASE EVENT DATE: 20250902
